FAERS Safety Report 9221735 (Version 1)
Quarter: 2013Q2

REPORT INFORMATION
  Report Type: Spontaneous
  Country: GB (occurrence: None)
  Receive Date: 20130408
  Receipt Date: 20130408
  Transmission Date: 20140414
  Serious: Yes (Disabling)
  Sender: FDA-Public Use
  Company Number: GER/UKI/13/0028886

PATIENT
  Age: 53 Year
  Sex: Female

DRUGS (12)
  1. SERTRALINE [Suspect]
     Indication: DEPRESSION
     Route: 048
     Dates: start: 20130301, end: 20130304
  2. AMOXICILLIN (AMOXICILLIN) [Concomitant]
  3. DIAZEPAM (DIAZEPAM) [Concomitant]
  4. DIPHYDROCODEINE (DIHYDROCODEINE) [Concomitant]
  5. DOSULEPINE (DOSULEPIN) [Concomitant]
  6. FLUCONAZOLE (FLUCONAZOLE) [Concomitant]
  7. GABAPENTIN (GABAPENTIN) [Concomitant]
  8. PREDNISOLONE (PREDNISOLONE) [Concomitant]
  9. QVAR (BECLOMETASONE DIPROPIONATE) [Concomitant]
  10. RAMIPRIL (RAMIPRIL) [Concomitant]
  11. SALBUTAMOL (SALBUTAMOL) [Concomitant]
  12. SUBUTEX (BUPRENORPHINE HYDROCHLORIDE) [Concomitant]

REACTIONS (9)
  - Diarrhoea [None]
  - Dizziness [None]
  - Insomnia [None]
  - Mania [None]
  - Hallucination, olfactory [None]
  - Serotonin syndrome [None]
  - Hyperhidrosis [None]
  - Vomiting [None]
  - Medication error [None]
